FAERS Safety Report 9283508 (Version 2)
Quarter: 2013Q2

REPORT INFORMATION
  Report Type: Spontaneous
  Country: US (occurrence: US)
  Receive Date: 20130510
  Receipt Date: 20130607
  Transmission Date: 20140414
  Serious: Yes (Other)
  Sender: FDA-Public Use
  Company Number: US-009507513-1305USA004369

PATIENT
  Age: 59 Year
  Sex: Female
  Weight: 58.5 kg

DRUGS (21)
  1. PEGINTRON [Suspect]
     Indication: HEPATITIS C
     Dosage: UNK
     Dates: start: 20130428
  2. REBETOL [Suspect]
     Indication: HEPATITIS C
     Dosage: UNK
     Dates: start: 20130428
  3. XIFAXAN [Concomitant]
     Indication: LIVER DISORDER
     Dosage: 1 DF, Q12H
     Dates: start: 20130522
  4. ALENDRONATE SODIUM [Concomitant]
     Dosage: 70 MG, ONCE A WEEK TAKE THE SAME DAY EACH WEEK
     Route: 048
     Dates: start: 20090216
  5. AMLODIPINE BESYLATE [Concomitant]
     Dosage: 1 DF, QD
     Route: 048
     Dates: start: 20090702
  6. ATORVASTATIN CALCIUM [Concomitant]
     Dosage: 1 DF, QD, AS DIRECTED
     Route: 048
     Dates: start: 20120126
  7. ATROPINE SULFATE (+) DIPHENOXYLATE HYDROCHLORIDE [Concomitant]
     Dosage: 1 DF, QD AS NEEDED
     Route: 048
     Dates: start: 20130410
  8. FLUOXETINE HYDROCHLORIDE [Concomitant]
     Dosage: 1 DF, QD
     Route: 048
     Dates: start: 20100930
  9. FLUTICASONE PROPIONATE [Concomitant]
     Dosage: USE 1-2 SPRAYS IN EACH NOSTRIL ONCE DAILY
     Route: 045
     Dates: start: 20090702
  10. ACETAMINOPHEN (+) HYDROCODONE BITARTRATE [Concomitant]
     Indication: PAIN
     Dosage: TAKE ONE OR TWO TABLETS BY MOUTH EVERY 4 TO 6 HOURS AS NEEDED
     Dates: start: 20130523
  11. LACTULOSE [Concomitant]
     Dosage: 10 GM/L5ML ORAL SOLUTION TAKE 30 ML TWICE DAILY
     Dates: start: 20130522
  12. LEVOXYL [Concomitant]
     Dosage: TAKE 1 ON MON, TUE, THUR, FRI, SAT, AND 2 ON SUN AND WED
     Dates: start: 20081215
  13. LIDOCAINE (+) PRILOCAINE [Concomitant]
     Dosage: APPLY L TO 2 HOURS PRIOR TO TREATMENT AS DIRECTED
     Dates: start: 20130523
  14. LISINOPRIL [Concomitant]
     Dosage: 1 DF, QD
     Route: 048
     Dates: start: 20090604
  15. LORAZEPAM [Concomitant]
     Dosage: 1 DF, BID
     Route: 048
     Dates: start: 20111011
  16. METFORMIN HYDROCHLORIDE [Concomitant]
     Dosage: 1 DF, BID
     Route: 048
     Dates: start: 20090427
  17. METRONIDAZOLE [Concomitant]
     Dosage: 1 DF, BID
     Route: 048
     Dates: start: 20130522
  18. TEMAZEPAM [Concomitant]
     Dosage: 1 DF, HS
     Route: 048
     Dates: start: 20110628
  19. TRIAMCINOLONE ACETONIDE [Concomitant]
     Dosage: APPLY TO RASH TWICE DALLY
     Dates: start: 20080425
  20. VENTOLIN HFA [Concomitant]
     Dosage: 108 (90 BASE) MCG/ACT INHALE TWO PUFFS FOUR TIMES DATLY AS NEEDED
     Dates: start: 20120724
  21. VENTOLIN HFA [Concomitant]
     Dosage: 108 (90 BASE) MCG/ACT INHALE I TO 2 PUFFS EVERY 4 TO 6 HOURS AS NEEDED
     Dates: start: 20130522

REACTIONS (1)
  - Invasive ductal breast carcinoma [Not Recovered/Not Resolved]
